FAERS Safety Report 9322057 (Version 1)
Quarter: 2013Q2

REPORT INFORMATION
  Report Type: Other
  Country: ZA (occurrence: ZA)
  Receive Date: 20130531
  Receipt Date: 20130531
  Transmission Date: 20140414
  Serious: Yes (Other)
  Sender: FDA-Public Use
  Company Number: ZA-BRISTOL-MYERS SQUIBB COMPANY-18922963

PATIENT
  Age: 34 Year
  Sex: Female

DRUGS (5)
  1. STREPTOMYCIN [Suspect]
     Indication: TUBERCULOUS PLEURISY
  2. ETHAMBUTOL [Suspect]
     Indication: TUBERCULOUS PLEURISY
  3. ISONIAZID [Suspect]
     Indication: TUBERCULOUS PLEURISY
  4. PYRAZINAMIDE [Suspect]
     Indication: TUBERCULOUS PLEURISY
  5. RIFAMPICIN [Suspect]
     Indication: TUBERCULOUS PLEURISY

REACTIONS (1)
  - Liver injury [Recovered/Resolved]
